FAERS Safety Report 18494559 (Version 1)
Quarter: 2020Q4

REPORT INFORMATION
  Report Type: Spontaneous
  Country: JP (occurrence: JP)
  Receive Date: 20201112
  Receipt Date: 20201112
  Transmission Date: 20210114
  Serious: Yes (Disabling, Other)
  Sender: FDA-Public Use
  Company Number: JP-ASTELLAS-2020JP014051

PATIENT
  Age: 31 Year
  Sex: Female
  Weight: 43 kg

DRUGS (11)
  1. PREDONINE [Suspect]
     Active Substance: PREDNISOLONE
     Dosage: 15 MG/DAY, UNKNOWN FREQ.
     Route: 048
  2. PREDONINE [Suspect]
     Active Substance: PREDNISOLONE
     Dosage: 1 MG/KG/DAY, UNKNOWN FREQ.
     Route: 048
  3. PROGRAF [Suspect]
     Active Substance: TACROLIMUS
     Indication: LUPUS NEPHRITIS
  4. PREDONINE [Suspect]
     Active Substance: PREDNISOLONE
     Indication: LUPUS NEPHRITIS
     Dosage: 45 MG/DAY, UNKNOWN FREQ.
     Route: 048
  5. BAYASPIRIN [Concomitant]
     Active Substance: ASPIRIN
     Indication: ANTIPHOSPHOLIPID SYNDROME
     Route: 048
     Dates: start: 20190125
  6. HEPARIN [Concomitant]
     Active Substance: HEPARIN SODIUM
     Indication: ANTIPHOSPHOLIPID SYNDROME
     Dosage: UNK UNK, UNKNOWN FREQ.
     Route: 065
  7. PREDONINE [Suspect]
     Active Substance: PREDNISOLONE
     Dosage: 6 MG/DAY, UNKNOWN FREQ.
     Route: 048
  8. INSULIN [Concomitant]
     Active Substance: INSULIN NOS
     Indication: BLOOD GLUCOSE INCREASED
     Dosage: UNK UNK, UNKNOWN FREQ.
     Route: 065
  9. PREDONINE [Suspect]
     Active Substance: PREDNISOLONE
     Indication: SYSTEMIC LUPUS ERYTHEMATOSUS
     Dosage: UNK UNK, UNKNOWN FREQ.
     Route: 048
  10. PROGRAF [Suspect]
     Active Substance: TACROLIMUS
     Indication: SYSTEMIC LUPUS ERYTHEMATOSUS
     Route: 048
     Dates: start: 20190129
  11. ALDOMET [Concomitant]
     Active Substance: METHYLDOPA
     Indication: BLOOD PRESSURE INCREASED
     Dosage: UNK UNK, UNKNOWN FREQ.
     Route: 065
     Dates: start: 2019

REACTIONS (3)
  - Central nervous system lupus [Recovering/Resolving]
  - Blood glucose increased [Recovered/Resolved]
  - Exposure during pregnancy [Unknown]

NARRATIVE: CASE EVENT DATE: 20190219
